FAERS Safety Report 22386751 (Version 2)
Quarter: 2023Q2

REPORT INFORMATION
  Report Type: Spontaneous
  Country: US (occurrence: US)
  Receive Date: 20230531
  Receipt Date: 20230613
  Transmission Date: 20230721
  Serious: No
  Sender: FDA-Public Use
  Company Number: US-TOLMAR, INC.-23US041096

PATIENT
  Age: 24 Year
  Sex: Male

DRUGS (3)
  1. KETOCONAZOLE [Suspect]
     Active Substance: KETOCONAZOLE
     Indication: Hair growth abnormal
     Dosage: UNK
     Route: 003
     Dates: start: 202303, end: 202305
  2. FINASTERIDE [Concomitant]
     Active Substance: FINASTERIDE
     Indication: Hair growth abnormal
     Dosage: UNK, QD
     Route: 048
     Dates: start: 202303
  3. UNSPECIFIED INGREDIENT [Concomitant]
     Active Substance: UNSPECIFIED INGREDIENT
     Indication: Asthma
     Dosage: UNK, PRN
     Route: 045

REACTIONS (4)
  - Off label use [Unknown]
  - Dry skin [Recovered/Resolved]
  - Skin burning sensation [Unknown]
  - Skin irritation [Recovered/Resolved]

NARRATIVE: CASE EVENT DATE: 20230101
